FAERS Safety Report 5755159-0 (Version None)
Quarter: 2008Q2

REPORT INFORMATION
  Report Type: 
  Country: None (occurrence: None)
  Receive Date: 20080602
  Receipt Date: 20080201
  Transmission Date: 20081010
  Serious: No
  Sender: FDA-Public Use
  Company Number: US-BAYER-200810878NA

PATIENT
  Age: 49 Year
  Sex: Female

DRUGS (7)
  1. MAGNEVIST [Suspect]
     Indication: NUCLEAR MAGNETIC RESONANCE IMAGING
     Route: 042
     Dates: start: 20071216, end: 20071216
  2. SIMVASTATIN [Concomitant]
  3. METRONIDAZOLE HCL [Concomitant]
  4. PREDNISONE TAB [Concomitant]
  5. EPIPEN [Concomitant]
  6. MOXIFLOXACIN HCL [Concomitant]
  7. BARIUM SULFATE [Concomitant]
     Route: 048
     Dates: start: 20071216, end: 20071216

REACTIONS (1)
  - URTICARIA [None]
